FAERS Safety Report 16760741 (Version 1)
Quarter: 2019Q3

REPORT INFORMATION
  Report Type: Spontaneous
  Country: FR (occurrence: FR)
  Receive Date: 20190830
  Receipt Date: 20190830
  Transmission Date: 20191005
  Serious: Yes (Hospitalization)
  Sender: FDA-Public Use
  Company Number: FR-ASTRAZENECA-2019SF20570

PATIENT
  Age: 47 Year
  Sex: Female
  Weight: 53 kg

DRUGS (3)
  1. SERTRALINE (HYDROCHLORIDE OF) [Suspect]
     Active Substance: SERTRALINE HYDROCHLORIDE
     Indication: POISONING DELIBERATE
     Dosage: 1400.0MG ONCE/SINGLE ADMINISTRATION
     Route: 048
     Dates: start: 20190128, end: 20190128
  2. PRAZEPAM [Suspect]
     Active Substance: PRAZEPAM
     Indication: POISONING DELIBERATE
     Dosage: 800.0MG ONCE/SINGLE ADMINISTRATION
     Route: 048
     Dates: start: 20190128, end: 20190128
  3. XEROQUEL LP [Suspect]
     Active Substance: QUETIAPINE FUMARATE
     Indication: POISONING DELIBERATE
     Dosage: 1.0G ONCE/SINGLE ADMINISTRATION
     Route: 048
     Dates: start: 20190128, end: 20190128

REACTIONS (2)
  - Mydriasis [Recovered/Resolved]
  - Somnolence [Recovered/Resolved]

NARRATIVE: CASE EVENT DATE: 20190128
